FAERS Safety Report 5396263-9 (Version None)
Quarter: 2007Q3

REPORT INFORMATION
  Report Type: 
  Country: None (occurrence: None)
  Receive Date: 20070718
  Receipt Date: 20070108
  Transmission Date: 20080115
  Serious: Yes (Death)
  Sender: FDA-Public Use
  Company Number: 2006140993

PATIENT
  Age: 44 Year
  Sex: Male
  Weight: 85.3 kg

DRUGS (5)
  1. CELEBREX [Suspect]
     Indication: BACK PAIN
     Dosage: (200 MG,2 IN 1 D)
     Dates: start: 20010131, end: 20020315
  2. ADVIL [Concomitant]
  3. ALEVE [Concomitant]
  4. ACETYLSALICYLIC ACID SRT [Concomitant]
  5. ACETAMINOPHEN [Concomitant]

REACTIONS (1)
  - CEREBROVASCULAR ACCIDENT [None]
